FAERS Safety Report 5937984-6 (Version None)
Quarter: 2008Q4

REPORT INFORMATION
  Report Type: 
  Country: None (occurrence: None)
  Receive Date: 20081031
  Receipt Date: 20081022
  Transmission Date: 20090506
  Serious: Yes (Hospitalization)
  Sender: FDA-Public Use
  Company Number: AU-PFIZER INC-2008078787

PATIENT
  Sex: Male
  Weight: 62 kg

DRUGS (10)
  1. CHAMPIX [Suspect]
     Indication: SMOKING CESSATION THERAPY
     Route: 048
     Dates: start: 20080611, end: 20080701
  2. ADALAT [Suspect]
     Indication: CHILLBLAINS
     Route: 048
  3. VENTOLIN [Concomitant]
  4. ATROVENT [Concomitant]
     Indication: CHILLBLAINS
  5. SPIRIVA [Concomitant]
     Dosage: DAILY DOSE:18MG
     Route: 055
     Dates: start: 20070506
  6. SERETIDE [Concomitant]
     Dosage: TEXT:250/50 ONE PUFF BID
     Route: 055
     Dates: start: 20071206
  7. NUELIN [Concomitant]
     Dosage: DAILY DOSE:300MG-TEXT:ONE DOSE BID
     Route: 048
     Dates: start: 20080731
  8. PREDNISOLONE [Concomitant]
  9. ACTONEL WITH CALCIUM (COPACKAGED) [Concomitant]
     Dosage: TEXT:ONE DAILY
     Route: 048
     Dates: start: 20080611
  10. INDAPAMIDE [Concomitant]
     Route: 048
     Dates: start: 20080528

REACTIONS (5)
  - BURNING SENSATION [None]
  - ERYTHEMA [None]
  - LACERATION [None]
  - OEDEMA PERIPHERAL [None]
  - PRURITUS [None]
